FAERS Safety Report 6544764-X (Version None)
Quarter: 2010Q1

REPORT INFORMATION
  Report Type: 
  Country: None (occurrence: None)
  Receive Date: 20100121
  Receipt Date: 20100116
  Transmission Date: 20100710
  Serious: Yes (Hospitalization)
  Sender: FDA-Public Use
  Company Number: US-BRISTOL-MYERS SQUIBB COMPANY-14933956

PATIENT
  Age: 57 Year
  Sex: Female

DRUGS (12)
  1. CARBOPLATIN [Suspect]
     Indication: BREAST CANCER METASTATIC
     Dosage: AUC 2, DRUG INTERRUPTED ON 23-DEC09
     Dates: start: 20090430
  2. ABRAXANE [Suspect]
     Indication: BREAST CANCER METASTATIC
     Dosage: 100MG/M2, INTERRUPTED ON 23-DEC09
     Dates: start: 20090430
  3. BEVACIZUMAB [Suspect]
     Indication: BREAST CANCER METASTATIC
     Dosage: 10MG/KG
     Dates: start: 20090430, end: 20091223
  4. CALCIUM [Concomitant]
     Indication: VITAMIN SUPPLEMENTATION
     Route: 048
     Dates: start: 20080317
  5. VITAMIN D [Concomitant]
     Dates: start: 20080317
  6. MULTI-VITAMINS [Concomitant]
     Indication: VITAMIN SUPPLEMENTATION
     Route: 048
     Dates: start: 20080317
  7. XANAX [Concomitant]
     Indication: ANXIETY
     Dosage: 1 DF - 0.25MG-0.5MG 1-2TABS Q4 HR
     Dates: start: 20090420
  8. PROMETHAZINE [Concomitant]
  9. CLARITIN [Concomitant]
     Indication: RHINITIS
     Route: 048
  10. SALINE [Concomitant]
     Indication: NASAL CONGESTION
     Dosage: SALINE NASAL SPRAY  1 DF - 1-2 SPRAY PER NOSTRIL PRN
     Route: 045
  11. HEMOCYTE PLUS [Concomitant]
     Indication: ANAEMIA
     Route: 048
     Dates: start: 20090824
  12. PHENERGAN HCL [Concomitant]
     Indication: NAUSEA
     Dosage: 1 DF - 12.5MG-25MG; 1/2-1 TAB Q4 HR
     Route: 048
     Dates: start: 20090420

REACTIONS (1)
  - THROMBOSIS [None]
